FAERS Safety Report 10373894 (Version 15)
Quarter: 2016Q4

REPORT INFORMATION
  Report Type: Report from Study
  Country: DE (occurrence: DE)
  Receive Date: 20140809
  Receipt Date: 20161129
  Transmission Date: 20170206
  Serious: Yes (Hospitalization)
  Sender: FDA-Public Use
  Company Number: PHHO2014DE010359

PATIENT
  Age: 62 Year
  Sex: Female

DRUGS (13)
  1. PANTOPRAZOLE [Suspect]
     Active Substance: PANTOPRAZOLE SODIUM
     Indication: PROPHYLAXIS
     Dosage: 40 MG, UNK
     Route: 065
     Dates: start: 201306
  2. AFLUNOV [Suspect]
     Active Substance: INFLUENZA VIRUS VACCINE
     Indication: IMMUNISATION
     Route: 030
     Dates: start: 20140711, end: 20140711
  3. CELLCEPT [Suspect]
     Active Substance: MYCOPHENOLATE MOFETIL\MYCOPHENOLATE MOFETIL HYDROCHLORIDE
     Indication: GRAFT VERSUS HOST DISEASE
     Dosage: 500 MG, UNK
     Route: 065
     Dates: start: 201306
  4. NOXAFIL [Suspect]
     Active Substance: POSACONAZOLE
     Indication: PROPHYLAXIS
     Dosage: 100 MG, UNK
     Route: 065
     Dates: start: 201306
  5. DECORTIN [Suspect]
     Active Substance: PREDNISONE
     Indication: CHRONIC OBSTRUCTIVE PULMONARY DISEASE
     Dosage: 5 MG, UNK
     Route: 065
     Dates: start: 201306
  6. PROGRAF [Suspect]
     Active Substance: TACROLIMUS\TACROLIMUS ANHYDROUS
     Indication: GRAFT VERSUS HOST DISEASE
     Dosage: 1 MG, UNK
     Route: 065
     Dates: start: 201306
  7. COLIFIN [Suspect]
     Active Substance: COLISTIMETHATE SODIUM
     Indication: PROPHYLAXIS
     Dosage: 1 DF (MILL)
     Route: 065
     Dates: start: 201306
  8. PRAVASTATIN. [Suspect]
     Active Substance: PRAVASTATIN
     Indication: HYPERCHOLESTEROLAEMIA
     Dosage: 20 MG, UNK
     Route: 065
     Dates: start: 201306
  9. SPIRIVA [Suspect]
     Active Substance: TIOTROPIUM BROMIDE MONOHYDRATE
     Indication: CHRONIC OBSTRUCTIVE PULMONARY DISEASE
     Dosage: 18 UG, UNK
     Route: 065
     Dates: start: 201306
  10. AMBISOME [Suspect]
     Active Substance: AMPHOTERICIN B
     Indication: PROPHYLAXIS
     Dosage: 10 MG, UNK
     Route: 065
     Dates: start: 201306
  11. FORADIL [Suspect]
     Active Substance: FORMOTEROL FUMARATE
     Indication: PRODUCT USED FOR UNKNOWN INDICATION
     Dosage: 12 UG, UNK
     Route: 065
     Dates: start: 201306
  12. COTRIM FORTE [Suspect]
     Active Substance: SULFAMETHOXAZOLE\TRIMETHOPRIM
     Indication: PROPHYLAXIS
     Dosage: 960 MG, UNK
     Route: 065
     Dates: start: 201306
  13. CERTICAN [Suspect]
     Active Substance: EVEROLIMUS
     Indication: PRODUCT USED FOR UNKNOWN INDICATION
     Dosage: 0.1 MG, UNK
     Route: 065
     Dates: start: 201306

REACTIONS (3)
  - Intestinal haemorrhage [Unknown]
  - Renal failure [Not Recovered/Not Resolved]
  - Intervertebral disc protrusion [Recovered/Resolved]

NARRATIVE: CASE EVENT DATE: 20140721
